FAERS Safety Report 20138664 (Version 7)
Quarter: 2022Q1

REPORT INFORMATION
  Report Type: Other
  Country: GB (occurrence: GB)
  Receive Date: 20211202
  Receipt Date: 20220121
  Transmission Date: 20220424
  Serious: Yes (Congenital Anomaly, Other)
  Sender: FDA-Public Use
  Company Number: GB-MACLEODS PHARMACEUTICALS US LTD-MAC2021033547

PATIENT

DRUGS (3)
  1. EMTRICITABINE\TENOFOVIR [Suspect]
     Active Substance: EMTRICITABINE\TENOFOVIR
     Indication: Product used for unknown indication
     Dosage: 1 DOSAGE FORM, QD( 1 COURSE, TAB/CAP, TAKING PRIOR CONCEPTION, DURING FIRST TRIMESTER)
     Route: 064
     Dates: start: 20190828
  2. ATAZANAVIR [Suspect]
     Active Substance: ATAZANAVIR
     Indication: Product used for unknown indication
     Dosage: 1 DOSAGE FORM, QD, (1 COURSE, TAB/CAP, TAKING PRIOR CONCEPTION, DURING FIRST TRIMESTER)
     Route: 064
     Dates: start: 20191028
  3. RITONAVIR [Suspect]
     Active Substance: RITONAVIR
     Indication: Product used for unknown indication
     Dosage: 1 DOSAGE FORM, QD, (1 COURSE, TAB/CAP, TAKING PRIOR CONCEPTION, DURING FIRST TRIMESTER)
     Route: 064
     Dates: start: 20191028

REACTIONS (9)
  - Trisomy 21 [Unknown]
  - Nystagmus [Unknown]
  - Ultrasound antenatal screen [Unknown]
  - Craniofacial deformity [Unknown]
  - Foetal chromosome abnormality [Unknown]
  - Melanoderma [Unknown]
  - Transient neonatal pustular melanosis [Unknown]
  - Oedema [Unknown]
  - Foetal exposure during pregnancy [Unknown]

NARRATIVE: CASE EVENT DATE: 20200216
